FAERS Safety Report 6400864-6 (Version None)
Quarter: 2009Q4

REPORT INFORMATION
  Report Type: 
  Country: None (occurrence: None)
  Receive Date: 20091009
  Receipt Date: 20090329
  Transmission Date: 20100525
  Serious: Yes (Other)
  Sender: FDA-Public Use
  Company Number: 140637

PATIENT
  Age: 54 Year
  Sex: Male
  Weight: 89.8 kg

DRUGS (1)
  1. METHOTREXATE [Suspect]
     Dosage: 2100 MG, 1 DOSE, INTRAVENOUS
     Route: 042
     Dates: start: 20090105, end: 20090106

REACTIONS (1)
  - RENAL FAILURE ACUTE [None]
